FAERS Safety Report 25101774 (Version 1)
Quarter: 2025Q1

REPORT INFORMATION
  Report Type: Spontaneous
  Country: JP (occurrence: JP)
  Receive Date: 20250320
  Receipt Date: 20250320
  Transmission Date: 20250409
  Serious: Yes (Hospitalization, Other)
  Sender: BAYER HEALTHCARE PHARMACEUTICALS INC.
  Company Number: JP-BAYER-2025A026759

PATIENT
  Age: 78 Year
  Sex: Female

DRUGS (9)
  1. STIVARGA [Suspect]
     Active Substance: REGORAFENIB MONOHYDRATE
     Indication: Colon cancer
     Route: 048
     Dates: start: 20250108
  2. STIVARGA [Suspect]
     Active Substance: REGORAFENIB MONOHYDRATE
     Indication: Colon cancer
     Route: 048
  3. AMLODIPINE [Concomitant]
     Active Substance: AMLODIPINE BESYLATE
  4. ANAGLIPTIN [Concomitant]
     Active Substance: ANAGLIPTIN
  5. CLOPIDOGREL [Concomitant]
     Active Substance: CLOPIDOGREL BISULFATE
  6. METFORMIN HYDROCHLORIDE [Concomitant]
     Active Substance: METFORMIN HYDROCHLORIDE
  7. SOLIFENACIN SUCCINATE [Concomitant]
     Active Substance: SOLIFENACIN SUCCINATE
  8. VIBEGRON [Concomitant]
     Active Substance: VIBEGRON
  9. EDOXABAN [Concomitant]
     Active Substance: EDOXABAN

REACTIONS (6)
  - Liver disorder [Not Recovered/Not Resolved]
  - COVID-19 [None]
  - Myelosuppression [None]
  - Platelet count decreased [None]
  - Neutrophil count decreased [None]
  - Product use issue [None]

NARRATIVE: CASE EVENT DATE: 20250101
